FAERS Safety Report 10495758 (Version 1)
Quarter: 2014Q4

REPORT INFORMATION
  Report Type: Report from Study
  Country: US (occurrence: US)
  Receive Date: 20141003
  Receipt Date: 20141003
  Transmission Date: 20150528
  Serious: Yes (Hospitalization)
  Sender: FDA-Public Use
  Company Number: US-ABBVIE-14K-163-1290001-00

PATIENT
  Age: 67 Year
  Sex: Male
  Weight: 56.3 kg

DRUGS (8)
  1. HEPARIN [Suspect]
     Active Substance: HEPARIN SODIUM
     Indication: PRODUCT USED FOR UNKNOWN INDICATION
     Dates: start: 201404, end: 201404
  2. FLORASTOR [Concomitant]
     Active Substance: SACCHAROMYCES CEREVISIAE
     Indication: PROBIOTIC THERAPY
  3. HUMIRA [Suspect]
     Active Substance: ADALIMUMAB
     Route: 058
     Dates: start: 201307, end: 201404
  4. SYNTHROID [Concomitant]
     Active Substance: LEVOTHYROXINE SODIUM
     Indication: HYPOTHYROIDISM
  5. HUMIRA [Suspect]
     Active Substance: ADALIMUMAB
     Indication: CROHN^S DISEASE
     Route: 058
     Dates: start: 2011, end: 201305
  6. PRESERVISION [Concomitant]
     Indication: MACULAR DEGENERATION
  7. PRESERVISION [Concomitant]
     Indication: VITAMIN SUPPLEMENTATION
  8. CELEXA [Concomitant]
     Active Substance: CITALOPRAM HYDROBROMIDE
     Indication: DEPRESSION

REACTIONS (19)
  - Gastrointestinal anastomotic leak [Recovered/Resolved]
  - Weight increased [Recovered/Resolved]
  - Dehydration [Recovered/Resolved]
  - Haemorrhage [Recovered/Resolved]
  - Blood creatinine increased [Recovered/Resolved]
  - Intestinal obstruction [Recovered/Resolved]
  - Fluid intake reduced [Recovered/Resolved]
  - Blood pressure decreased [Recovered/Resolved]
  - Faecal incontinence [Recovered/Resolved]
  - Abdominal adhesions [Not Recovered/Not Resolved]
  - Post procedural discharge [Recovering/Resolving]
  - Dehydration [Recovered/Resolved]
  - Weight decreased [Recovered/Resolved]
  - Dehydration [Recovered/Resolved]
  - Asthenia [Recovered/Resolved]
  - Hypophagia [Recovered/Resolved]
  - Weight increased [Not Recovered/Not Resolved]
  - Post procedural haemorrhage [Recovered/Resolved]
  - Weight decreased [Recovered/Resolved]

NARRATIVE: CASE EVENT DATE: 2013
